FAERS Safety Report 20238202 (Version 13)
Quarter: 2025Q3

REPORT INFORMATION
  Report Type: Report from Study
  Country: EU (occurrence: EU)
  Receive Date: 20211228
  Receipt Date: 20250729
  Transmission Date: 20251021
  Serious: Yes (Hospitalization, Other)
  Sender: MYLAN
  Company Number: EU-ROCHE-2082700

PATIENT
  Age: 57 Year
  Sex: Male

DRUGS (92)
  1. PREGABALIN [Suspect]
     Active Substance: PREGABALIN
     Indication: Product used for unknown indication
  2. PREGABALIN [Suspect]
     Active Substance: PREGABALIN
     Route: 065
  3. PREGABALIN [Suspect]
     Active Substance: PREGABALIN
     Route: 065
  4. PREGABALIN [Suspect]
     Active Substance: PREGABALIN
  5. OCREVUS [Suspect]
     Active Substance: OCRELIZUMAB
     Indication: Relapsing-remitting multiple sclerosis
     Dosage: 300 MILLIGRAM, Q2W
     Route: 042
     Dates: start: 20180222
  6. OCREVUS [Suspect]
     Active Substance: OCRELIZUMAB
     Indication: Primary progressive multiple sclerosis
     Dosage: 300 MILLIGRAM, Q2W
     Dates: start: 20180222
  7. OCREVUS [Suspect]
     Active Substance: OCRELIZUMAB
     Dosage: 300 MILLIGRAM, Q2W
     Dates: start: 20180222
  8. OCREVUS [Suspect]
     Active Substance: OCRELIZUMAB
     Dosage: 300 MILLIGRAM, Q2W
     Route: 042
     Dates: start: 20180222
  9. OCREVUS [Suspect]
     Active Substance: OCRELIZUMAB
  10. OCREVUS [Suspect]
     Active Substance: OCRELIZUMAB
  11. OCREVUS [Suspect]
     Active Substance: OCRELIZUMAB
     Route: 042
  12. OCREVUS [Suspect]
     Active Substance: OCRELIZUMAB
     Route: 042
  13. OCREVUS [Suspect]
     Active Substance: OCRELIZUMAB
     Dates: start: 20180913, end: 20180913
  14. OCREVUS [Suspect]
     Active Substance: OCRELIZUMAB
     Route: 042
     Dates: start: 20180913, end: 20180913
  15. OCREVUS [Suspect]
     Active Substance: OCRELIZUMAB
     Route: 042
     Dates: start: 20180913, end: 20180913
  16. OCREVUS [Suspect]
     Active Substance: OCRELIZUMAB
     Dates: start: 20180913, end: 20180913
  17. OCREVUS [Suspect]
     Active Substance: OCRELIZUMAB
     Route: 042
  18. OCREVUS [Suspect]
     Active Substance: OCRELIZUMAB
     Route: 042
  19. OCREVUS [Suspect]
     Active Substance: OCRELIZUMAB
  20. OCREVUS [Suspect]
     Active Substance: OCRELIZUMAB
  21. OCREVUS [Suspect]
     Active Substance: OCRELIZUMAB
  22. OCREVUS [Suspect]
     Active Substance: OCRELIZUMAB
  23. OCREVUS [Suspect]
     Active Substance: OCRELIZUMAB
     Route: 042
  24. OCREVUS [Suspect]
     Active Substance: OCRELIZUMAB
     Route: 042
  25. OCREVUS [Suspect]
     Active Substance: OCRELIZUMAB
     Route: 042
  26. OCREVUS [Suspect]
     Active Substance: OCRELIZUMAB
  27. OCREVUS [Suspect]
     Active Substance: OCRELIZUMAB
  28. OCREVUS [Suspect]
     Active Substance: OCRELIZUMAB
     Route: 042
  29. OCREVUS [Suspect]
     Active Substance: OCRELIZUMAB
     Route: 042
  30. OCREVUS [Suspect]
     Active Substance: OCRELIZUMAB
     Route: 042
  31. OCREVUS [Suspect]
     Active Substance: OCRELIZUMAB
  32. OCREVUS [Suspect]
     Active Substance: OCRELIZUMAB
  33. OCREVUS [Suspect]
     Active Substance: OCRELIZUMAB
  34. OCREVUS [Suspect]
     Active Substance: OCRELIZUMAB
  35. OCREVUS [Suspect]
     Active Substance: OCRELIZUMAB
     Route: 065
  36. OCREVUS [Suspect]
     Active Substance: OCRELIZUMAB
     Route: 065
  37. DIMETHINDENE [Suspect]
     Active Substance: DIMETHINDENE
     Indication: Product used for unknown indication
  38. DIMETHINDENE [Suspect]
     Active Substance: DIMETHINDENE
     Route: 065
  39. DIMETHINDENE [Suspect]
     Active Substance: DIMETHINDENE
     Route: 065
  40. DIMETHINDENE [Suspect]
     Active Substance: DIMETHINDENE
  41. VARICELLA-ZOSTER VIRUS STRAIN OKA/MERCK LIVE ANTIGEN [Suspect]
     Active Substance: VARICELLA-ZOSTER VIRUS STRAIN OKA/MERCK LIVE ANTIGEN
     Indication: Product used for unknown indication
  42. VARICELLA-ZOSTER VIRUS STRAIN OKA/MERCK LIVE ANTIGEN [Suspect]
     Active Substance: VARICELLA-ZOSTER VIRUS STRAIN OKA/MERCK LIVE ANTIGEN
     Route: 065
  43. VARICELLA-ZOSTER VIRUS STRAIN OKA/MERCK LIVE ANTIGEN [Suspect]
     Active Substance: VARICELLA-ZOSTER VIRUS STRAIN OKA/MERCK LIVE ANTIGEN
     Route: 065
  44. VARICELLA-ZOSTER VIRUS STRAIN OKA/MERCK LIVE ANTIGEN [Suspect]
     Active Substance: VARICELLA-ZOSTER VIRUS STRAIN OKA/MERCK LIVE ANTIGEN
  45. CORTISONE [Suspect]
     Active Substance: CORTISONE
     Indication: Muscle spasticity
     Dosage: 1000 MILLIGRAM, QD
     Dates: start: 20200206, end: 20200210
  46. CORTISONE [Suspect]
     Active Substance: CORTISONE
     Indication: Peroneal nerve palsy
     Dosage: 1000 MILLIGRAM, QD
     Dates: start: 20200206, end: 20200210
  47. CORTISONE [Suspect]
     Active Substance: CORTISONE
     Dosage: 1000 MILLIGRAM, QD
     Route: 042
     Dates: start: 20200206, end: 20200210
  48. CORTISONE [Suspect]
     Active Substance: CORTISONE
     Dosage: 1000 MILLIGRAM, QD
     Route: 042
     Dates: start: 20200206, end: 20200210
  49. CORTISONE [Suspect]
     Active Substance: CORTISONE
     Dosage: UNK, QD
     Dates: start: 20211025, end: 20211108
  50. CORTISONE [Suspect]
     Active Substance: CORTISONE
     Dosage: UNK, QD
     Dates: start: 20211025, end: 20211108
  51. CORTISONE [Suspect]
     Active Substance: CORTISONE
     Dosage: UNK, QD
     Route: 042
     Dates: start: 20211025, end: 20211108
  52. CORTISONE [Suspect]
     Active Substance: CORTISONE
     Dosage: UNK, QD
     Route: 042
     Dates: start: 20211025, end: 20211108
  53. CORTISONE [Suspect]
     Active Substance: CORTISONE
     Indication: Peroneal nerve palsy
     Route: 037
     Dates: start: 20211121, end: 20211126
  54. CORTISONE [Suspect]
     Active Substance: CORTISONE
     Indication: Muscle spasticity
     Dates: start: 20211121, end: 20211126
  55. CORTISONE [Suspect]
     Active Substance: CORTISONE
     Dates: start: 20211121, end: 20211126
  56. CORTISONE [Suspect]
     Active Substance: CORTISONE
     Route: 037
     Dates: start: 20211121, end: 20211126
  57. CORTISONE [Suspect]
     Active Substance: CORTISONE
     Route: 037
     Dates: start: 20220822, end: 20220825
  58. CORTISONE [Suspect]
     Active Substance: CORTISONE
     Dates: start: 20220822, end: 20220825
  59. CORTISONE [Suspect]
     Active Substance: CORTISONE
     Dates: start: 20220822, end: 20220825
  60. CORTISONE [Suspect]
     Active Substance: CORTISONE
     Route: 037
     Dates: start: 20220822, end: 20220825
  61. CORTISONE [Suspect]
     Active Substance: CORTISONE
     Route: 037
     Dates: start: 20240219, end: 20240222
  62. CORTISONE [Suspect]
     Active Substance: CORTISONE
     Route: 037
     Dates: start: 20240219, end: 20240222
  63. CORTISONE [Suspect]
     Active Substance: CORTISONE
     Dates: start: 20240219, end: 20240222
  64. CORTISONE [Suspect]
     Active Substance: CORTISONE
     Dates: start: 20240219, end: 20240222
  65. IBUPROFEN [Concomitant]
     Active Substance: IBUPROFEN
  66. IBUPROFEN [Concomitant]
     Active Substance: IBUPROFEN
     Route: 065
  67. IBUPROFEN [Concomitant]
     Active Substance: IBUPROFEN
     Route: 065
  68. IBUPROFEN [Concomitant]
     Active Substance: IBUPROFEN
  69. DULOXETINE [Concomitant]
     Active Substance: DULOXETINE
     Dosage: 90 MILLIGRAM, BID (1-0-1)
  70. DULOXETINE [Concomitant]
     Active Substance: DULOXETINE
     Dosage: 90 MILLIGRAM, BID (1-0-1)
     Route: 065
  71. DULOXETINE [Concomitant]
     Active Substance: DULOXETINE
     Dosage: 90 MILLIGRAM, BID (1-0-1)
     Route: 065
  72. DULOXETINE [Concomitant]
     Active Substance: DULOXETINE
     Dosage: 90 MILLIGRAM, BID (1-0-1)
  73. BACLOFEN [Concomitant]
     Active Substance: BACLOFEN
     Indication: Muscle spasticity
     Dosage: 15 MILLIGRAM, TID (1-1-1)
  74. BACLOFEN [Concomitant]
     Active Substance: BACLOFEN
     Dosage: 15 MILLIGRAM, TID (1-1-1)
  75. BACLOFEN [Concomitant]
     Active Substance: BACLOFEN
     Dosage: 15 MILLIGRAM, TID (1-1-1)
     Route: 048
  76. BACLOFEN [Concomitant]
     Active Substance: BACLOFEN
     Dosage: 15 MILLIGRAM, TID (1-1-1)
     Route: 048
  77. BACLOFEN [Concomitant]
     Active Substance: BACLOFEN
     Dosage: 10 MG, TID(ADMINISTRATION ON 1 DAY EVERY 2 WEEKS)
  78. BACLOFEN [Concomitant]
     Active Substance: BACLOFEN
     Dosage: 10 MG, TID(ADMINISTRATION ON 1 DAY EVERY 2 WEEKS)
  79. BACLOFEN [Concomitant]
     Active Substance: BACLOFEN
     Dosage: 10 MG, TID(ADMINISTRATION ON 1 DAY EVERY 2 WEEKS)
     Route: 065
  80. BACLOFEN [Concomitant]
     Active Substance: BACLOFEN
     Dosage: 10 MG, TID(ADMINISTRATION ON 1 DAY EVERY 2 WEEKS)
     Route: 065
  81. BACLOFEN [Concomitant]
     Active Substance: BACLOFEN
     Dosage: 10 MILLIGRAM, TID (1-1-1)
  82. BACLOFEN [Concomitant]
     Active Substance: BACLOFEN
     Dosage: 10 MILLIGRAM, TID (1-1-1)
     Route: 048
  83. BACLOFEN [Concomitant]
     Active Substance: BACLOFEN
     Dosage: 10 MILLIGRAM, TID (1-1-1)
  84. BACLOFEN [Concomitant]
     Active Substance: BACLOFEN
     Dosage: 10 MILLIGRAM, TID (1-1-1)
     Route: 048
  85. BOTOX [Concomitant]
     Active Substance: ONABOTULINUMTOXINA
     Indication: Muscle spasticity
     Dosage: UNK, Q3MONTHS (INTO THE RIGHT ARM)
  86. BOTOX [Concomitant]
     Active Substance: ONABOTULINUMTOXINA
     Dosage: UNK, Q3MONTHS (INTO THE RIGHT ARM)
     Route: 065
  87. BOTOX [Concomitant]
     Active Substance: ONABOTULINUMTOXINA
     Dosage: UNK, Q3MONTHS (INTO THE RIGHT ARM)
     Route: 065
  88. BOTOX [Concomitant]
     Active Substance: ONABOTULINUMTOXINA
     Dosage: UNK, Q3MONTHS (INTO THE RIGHT ARM)
  89. METAMIZOLE [Concomitant]
     Active Substance: METAMIZOLE
  90. METAMIZOLE [Concomitant]
     Active Substance: METAMIZOLE
     Route: 065
  91. METAMIZOLE [Concomitant]
     Active Substance: METAMIZOLE
     Route: 065
  92. METAMIZOLE [Concomitant]
     Active Substance: METAMIZOLE

REACTIONS (28)
  - Clavicle fracture [Recovered/Resolved]
  - Peroneal nerve palsy [Recovering/Resolving]
  - Rib fracture [Recovered/Resolved]
  - Pelvic fracture [Recovered/Resolved]
  - Upper limb fracture [Recovered/Resolved]
  - Muscle spasticity [Recovering/Resolving]
  - Road traffic accident [Unknown]
  - Multiple sclerosis [Not Recovered/Not Resolved]
  - Femoral neck fracture [Recovered/Resolved]
  - Erythema [Recovered/Resolved]
  - Injection site erythema [Recovered/Resolved]
  - Injection site swelling [Recovered/Resolved]
  - Muscular weakness [Not Recovered/Not Resolved]
  - Asthenia [Recovered/Resolved]
  - Fatigue [Recovered/Resolved]
  - Nasopharyngitis [Recovered/Resolved]
  - Balance disorder [Recovered/Resolved]
  - Neck pain [Not Recovered/Not Resolved]
  - Arthralgia [Not Recovered/Not Resolved]
  - Headache [Not Recovered/Not Resolved]
  - Swelling face [Recovered/Resolved]
  - Liver function test increased [Recovered/Resolved]
  - Initial insomnia [Recovered/Resolved]
  - Pain in extremity [Recovered/Resolved]
  - Bursitis [Recovered/Resolved]
  - Fall [Unknown]
  - B-lymphocyte count decreased [Recovered/Resolved]
  - Tremor [Not Recovered/Not Resolved]

NARRATIVE: CASE EVENT DATE: 20180222
